FAERS Safety Report 21531239 (Version 1)
Quarter: 2022Q4

REPORT INFORMATION
  Report Type: Spontaneous
  Country: US (occurrence: None)
  Receive Date: 20221028
  Receipt Date: 20221028
  Transmission Date: 20230113
  Serious: No
  Sender: FDA-Public Use
  Company Number: None

PATIENT
  Age: 64 Year
  Sex: Male

DRUGS (1)
  1. EMPAGLIFLOZIN [Suspect]
     Active Substance: EMPAGLIFLOZIN
     Indication: Diabetes mellitus
     Dosage: 12.5 MG EVERY DAY PO?
     Route: 048
     Dates: start: 20220401, end: 20220811

REACTIONS (4)
  - Acute kidney injury [None]
  - Hypotension [None]
  - Orthostatic hypotension [None]
  - Renal disorder [None]

NARRATIVE: CASE EVENT DATE: 20220811
